FAERS Safety Report 16193383 (Version 1)
Quarter: 2019Q2

REPORT INFORMATION
  Report Type: Spontaneous
  Country: GB (occurrence: GB)
  Receive Date: 20190413
  Receipt Date: 20190413
  Transmission Date: 20190711
  Serious: Yes (Other)
  Sender: FDA-Public Use
  Company Number: GB-TEVA-2019-GB-1036456

PATIENT
  Age: 5 Year
  Sex: Female
  Weight: 5 kg

DRUGS (1)
  1. PHENOXYMETHYLPENICILLIN [Suspect]
     Active Substance: PENICILLIN V
     Route: 065
     Dates: start: 20180429

REACTIONS (3)
  - Pruritus [Recovered/Resolved]
  - Rash [Unknown]
  - Lip swelling [Recovering/Resolving]

NARRATIVE: CASE EVENT DATE: 20180429
